FAERS Safety Report 13586692 (Version 2)
Quarter: 2017Q3

REPORT INFORMATION
  Report Type: Spontaneous
  Country: US (occurrence: US)
  Receive Date: 20170526
  Receipt Date: 20170706
  Transmission Date: 20171127
  Serious: Yes (Other)
  Sender: FDA-Public Use
  Company Number: US-BAYER-2017-097901

PATIENT
  Age: 50 Year
  Sex: Female

DRUGS (1)
  1. CLIMARA PRO [Suspect]
     Active Substance: ESTRADIOL\LEVONORGESTREL
     Indication: MENOPAUSE
     Dosage: 1 DF, OW
     Route: 062
     Dates: start: 201612

REACTIONS (2)
  - Hot flush [Not Recovered/Not Resolved]
  - Postmenopausal haemorrhage [Not Recovered/Not Resolved]

NARRATIVE: CASE EVENT DATE: 201705
